FAERS Safety Report 9413843 (Version 1)
Quarter: 2013Q3

REPORT INFORMATION
  Report Type: Report from Study
  Country: US (occurrence: US)
  Receive Date: 20130723
  Receipt Date: 20130723
  Transmission Date: 20140515
  Serious: Yes (Other)
  Sender: FDA-Public Use
  Company Number: US-ROCHE-707671

PATIENT
  Sex: 0

DRUGS (11)
  1. TRASTUZUMAB [Suspect]
     Indication: BREAST CANCER METASTATIC
     Route: 065
  2. TRASTUZUMAB [Suspect]
     Dosage: LOADING DOSE
     Route: 042
  3. TRASTUZUMAB [Suspect]
     Dosage: IN COHORT 1, 2, 3 TILL 24 WEEKS
     Route: 042
  4. LAPATINIB [Suspect]
     Indication: BREAST CANCER METASTATIC
     Dosage: COHORT 1
     Route: 048
  5. LAPATINIB [Suspect]
     Dosage: COHORT 2
     Route: 048
  6. LAPATINIB [Suspect]
     Dosage: COHORT 3 TILL 24 WEEKS
     Route: 048
  7. PACLITAXEL [Suspect]
     Indication: BREAST CANCER METASTATIC
     Dosage: WEEKLY FOR THREE WEEKS IN A FOUR WEEKS CYCLE
     Route: 065
  8. PACLITAXEL [Suspect]
     Dosage: COHORT 1 (4 WEEK CYCLE)
     Route: 042
  9. PACLITAXEL [Suspect]
     Dosage: COHORT 2 (4 WEEK CYCLE)
     Route: 042
  10. PACLITAXEL [Suspect]
     Dosage: COHORT 3 TILL 24 WEEKS
     Route: 042
  11. LOPERAMIDE [Concomitant]
     Indication: PROPHYLAXIS

REACTIONS (8)
  - Dehydration [Unknown]
  - Diarrhoea [Unknown]
  - Hepatobiliary disease [Unknown]
  - Ejection fraction decreased [Unknown]
  - Hypokalaemia [Unknown]
  - Nausea [Unknown]
  - Pleural effusion [Unknown]
  - Vomiting [Unknown]
